FAERS Safety Report 10343232 (Version 1)
Quarter: 2014Q3

REPORT INFORMATION
  Report Type: Spontaneous
  Country: CA (occurrence: CA)
  Receive Date: 20140725
  Receipt Date: 20140725
  Transmission Date: 20150326
  Serious: Yes (Hospitalization, Other)
  Sender: FDA-Public Use
  Company Number: CA-PFIZER INC-2014206624

PATIENT
  Age: 71 Year
  Sex: Female

DRUGS (2)
  1. LINCOMYCIN HCL [Suspect]
     Active Substance: LINCOMYCIN HYDROCHLORIDE
     Indication: INFECTION
  2. LINCOMYCIN HCL [Suspect]
     Active Substance: LINCOMYCIN HYDROCHLORIDE
     Indication: SKIN ULCER
     Dosage: UNK

REACTIONS (5)
  - Hypoalbuminaemia [Unknown]
  - Anaemia [Unknown]
  - Pseudomembranous colitis [Recovered/Resolved]
  - Hypotension [Unknown]
  - Cardiac failure congestive [Unknown]
